FAERS Safety Report 7779119-3 (Version None)
Quarter: 2011Q3

REPORT INFORMATION
  Report Type: 
  Country: None (occurrence: None)
  Receive Date: 20110926
  Receipt Date: 20110913
  Transmission Date: 20111222
  Serious: Yes (Other)
  Sender: FDA-Public Use
  Company Number: PHHY2011BR82458

PATIENT
  Age: 53 Year
  Sex: Male

DRUGS (6)
  1. AMLODIPINE BESYLATE [Suspect]
     Dosage: 1 DF, QD
  2. ASPIRIN [Suspect]
     Dosage: 1 DF DAILY
  3. EXFORGE [Suspect]
     Indication: HYPERTENSION
     Dosage: 1 DF, DAILY (320 MG OF VALS AND 5 MG OF AMLO)
  4. ATORVASTATIN [Suspect]
     Dosage: 20 MG, UNK
  5. METFORMIN HCL [Suspect]
     Dosage: 3 TIMES DAILY
  6. NPH INSULIN [Suspect]
     Dosage: UNK UKN, UNK

REACTIONS (2)
  - MICROALBUMINURIA [None]
  - RENAL FAILURE [None]
